FAERS Safety Report 26019235 (Version 1)
Quarter: 2025Q4

REPORT INFORMATION
  Report Type: Spontaneous
  Country: EG (occurrence: EG)
  Receive Date: 20251110
  Receipt Date: 20251110
  Transmission Date: 20260117
  Serious: Yes (Other)
  Sender: HIKMA
  Company Number: EG-HIKMA PHARMACEUTICALS-EG-H14001-25-11903

PATIENT

DRUGS (6)
  1. DOCETAXEL [Suspect]
     Active Substance: DOCETAXEL
     Indication: Product used for unknown indication
     Dosage: 80 MILLIGRAM, QOW, OVER 90 MINUTES
     Route: 041
     Dates: start: 20250723
  2. LEUCOVORIN CALCIUM [Suspect]
     Active Substance: LEUCOVORIN CALCIUM
     Indication: Product used for unknown indication
     Dosage: 320 MILLIGRAM, QOW, OVER 2 HOURS FOR 2 DAYS
     Route: 041
     Dates: start: 20250723
  3. OXALIPLATIN [Suspect]
     Active Substance: OXALIPLATIN
     Indication: Product used for unknown indication
     Dosage: 136 MILLIGRAM, QOW, OVER 2 HOURS
     Route: 041
     Dates: start: 20250723
  4. FLUOROURACIL [Suspect]
     Active Substance: FLUOROURACIL
     Indication: Product used for unknown indication
     Dosage: 4160 MILLIGRAM, QOW, OVER 24 HOURS
     Route: 041
     Dates: start: 20250723
  5. DEXAMETHASONE [Concomitant]
     Active Substance: DEXAMETHASONE
     Indication: Chemotherapy side effect prophylaxis
     Dosage: UNKNOWN
     Route: 042
  6. EM EX [Concomitant]
     Indication: Chemotherapy side effect prophylaxis
     Dosage: UNKNOWN
     Route: 042

REACTIONS (2)
  - Hypochromic anaemia [Recovered/Resolved]
  - Neutropenia [Recovered/Resolved]

NARRATIVE: CASE EVENT DATE: 20250805
